FAERS Safety Report 6821179-8 (Version None)
Quarter: 2010Q3

REPORT INFORMATION
  Report Type: 
  Country: None (occurrence: None)
  Receive Date: 20100707
  Receipt Date: 20080314
  Transmission Date: 20110219
  Serious: No
  Sender: FDA-Public Use
  Company Number: US-PFIZER INC-2008025926

PATIENT
  Sex: Female

DRUGS (4)
  1. ZOLOFT [Suspect]
     Indication: ANXIETY
     Route: 048
     Dates: start: 20080201
  2. ZOLOFT [Suspect]
     Indication: OBSESSIVE THOUGHTS
  3. ZOLOFT [Suspect]
     Indication: DEPRESSION
  4. ZYRTEC [Concomitant]
     Indication: RHINITIS ALLERGIC

REACTIONS (2)
  - ALANINE AMINOTRANSFERASE INCREASED [None]
  - ASPARTATE AMINOTRANSFERASE INCREASED [None]
